FAERS Safety Report 21562433 (Version 1)
Quarter: 2022Q4

REPORT INFORMATION
  Report Type: Spontaneous
  Country: PL (occurrence: PL)
  Receive Date: 20221107
  Receipt Date: 20221107
  Transmission Date: 20230112
  Serious: Yes (Hospitalization, Other)
  Sender: FDA-Public Use
  Company Number: PL-Merz Pharmaceuticals GmbH-22-02299

PATIENT
  Age: 42 Year
  Sex: Male

DRUGS (19)
  1. VORTIOXETINE [Interacting]
     Active Substance: VORTIOXETINE
     Indication: Depression
     Dosage: UNK
     Route: 065
  2. ASPIRIN [Suspect]
     Active Substance: ASPIRIN
     Indication: Acute coronary syndrome
     Dosage: 150 MILLIGRAM, QD
     Route: 065
  3. MEMANTINE [Interacting]
     Active Substance: MEMANTINE
     Indication: Memory impairment
     Dosage: 10 MILLIGRAM, QD
     Route: 048
  4. MEMANTINE [Interacting]
     Active Substance: MEMANTINE
     Indication: Amnesia
  5. ACETAMINOPHEN [Suspect]
     Active Substance: ACETAMINOPHEN
     Indication: Myalgia
     Dosage: 4 GRAM, QD
     Route: 065
  6. ACETAMINOPHEN [Suspect]
     Active Substance: ACETAMINOPHEN
     Indication: Abdominal pain upper
  7. OMEPRAZOLE [Suspect]
     Active Substance: OMEPRAZOLE
     Indication: Acute coronary syndrome
     Dosage: 40 MILLIGRAM, QD
     Route: 048
  8. OMEPRAZOLE [Suspect]
     Active Substance: OMEPRAZOLE
     Dosage: 80 MILLIGRAM, QD
     Route: 048
  9. ACETAMINOPHEN\TRAMADOL [Suspect]
     Active Substance: ACETAMINOPHEN\TRAMADOL
     Indication: Abdominal pain upper
     Dosage: 1 DOSAGE FORM, Q8HR
     Route: 048
  10. ACETAMINOPHEN\TRAMADOL [Suspect]
     Active Substance: ACETAMINOPHEN\TRAMADOL
     Indication: Myalgia
  11. TRAMADOL [Interacting]
     Active Substance: TRAMADOL
     Indication: Product used for unknown indication
     Dosage: UNK
     Route: 065
  12. NEBIVOLOL [Interacting]
     Active Substance: NEBIVOLOL
     Indication: Acute coronary syndrome
     Dosage: 5 MILLIGRAM, QD
     Route: 065
  13. ZOFENOPRIL [Interacting]
     Active Substance: ZOFENOPRIL
     Indication: Acute coronary syndrome
     Dosage: 7.5 MILLIGRAM, QD
     Route: 065
  14. ITRACONAZOLE [Interacting]
     Active Substance: ITRACONAZOLE
     Indication: Onychomycosis
     Dosage: 200 MILLIGRAM, BID
     Route: 048
  15. ITRACONAZOLE [Interacting]
     Active Substance: ITRACONAZOLE
     Indication: Fungal infection
  16. BUPROPION [Interacting]
     Active Substance: BUPROPION
     Indication: Depression
     Dosage: 300 MILLIGRAM
     Route: 048
  17. CLOPIDOGREL [Interacting]
     Active Substance: CLOPIDOGREL BISULFATE
     Indication: Acute coronary syndrome
     Dosage: 75 MILLIGRAM, QD
     Route: 048
  18. DROTAVERINE [Interacting]
     Active Substance: DROTAVERINE
     Indication: Abdominal pain upper
     Dosage: 80 MILLIGRAM, TID
     Route: 065
  19. SERTRALINE [Interacting]
     Active Substance: SERTRALINE HYDROCHLORIDE
     Indication: Depression
     Dosage: UNK
     Route: 065

REACTIONS (16)
  - Myalgia [Recovered/Resolved]
  - Arthralgia [Recovered/Resolved]
  - Abdominal pain upper [Recovered/Resolved]
  - Abdominal pain [Recovered/Resolved]
  - Drug level increased [Recovered/Resolved]
  - Inadequate analgesia [Recovered/Resolved]
  - Drug ineffective [Recovered/Resolved]
  - Drug interaction [Recovered/Resolved]
  - Medication error [Unknown]
  - Onychomycosis [Recovered/Resolved]
  - Condition aggravated [Recovered/Resolved]
  - Back pain [Recovered/Resolved]
  - Depression [Recovered/Resolved]
  - Product use in unapproved indication [Recovered/Resolved]
  - Off label use [Unknown]
  - Nausea [Recovered/Resolved]
